FAERS Safety Report 12781585 (Version 1)
Quarter: 2016Q3

REPORT INFORMATION
  Report Type: Other
  Country: None (occurrence: US)
  Receive Date: 20160926
  Receipt Date: 20160926
  Transmission Date: 20161109
  Serious: Yes (Hospitalization, Other)
  Sender: FDA-Public Use
  Company Number: US-GUTHY-RENKER LLC-1057720

PATIENT
  Age: 38 Year
  Sex: Female

DRUGS (2)
  1. VITAMIN D, MAGNESIUM [Concomitant]
  2. MEANINGFUL BEAUTY WELLNESS DIETARY SUPPLEMENT 30 DAY [Suspect]
     Active Substance: MINERALS\VITAMINS
     Indication: SUPPLEMENTATION THERAPY
     Route: 048
     Dates: start: 20140429

REACTIONS (3)
  - Gastritis [Recovered/Resolved]
  - Drug hypersensitivity [None]
  - Dehydration [None]

NARRATIVE: CASE EVENT DATE: 20140429
